FAERS Safety Report 9436535 (Version 1)
Quarter: 2013Q3

REPORT INFORMATION
  Report Type: Spontaneous
  Country: US (occurrence: US)
  Receive Date: 20130802
  Receipt Date: 20130802
  Transmission Date: 20140515
  Serious: No
  Sender: FDA-Public Use
  Company Number: US-OPTIMER-20130109

PATIENT
  Age: 74 Year
  Sex: Male

DRUGS (4)
  1. DIFICID [Suspect]
     Indication: CLOSTRIDIUM DIFFICILE COLITIS
     Dosage: 200 MG, BID
     Route: 048
     Dates: start: 20130321, end: 20130330
  2. DIFICID [Suspect]
     Dosage: 200 MG, BID
     Route: 048
     Dates: start: 20130401
  3. FLAGYL [Concomitant]
     Indication: CLOSTRIDIUM DIFFICILE COLITIS
     Dosage: UNK
  4. MAGNESIUM [Concomitant]
     Indication: ELECTROLYTE IMBALANCE

REACTIONS (3)
  - Pyrexia [Recovered/Resolved]
  - Electrolyte imbalance [Recovered/Resolved]
  - Diarrhoea [Recovering/Resolving]
